FAERS Safety Report 24365733 (Version 1)
Quarter: 2024Q3

REPORT INFORMATION
  Report Type: Spontaneous
  Country: DE (occurrence: DE)
  Receive Date: 20240926
  Receipt Date: 20240926
  Transmission Date: 20241016
  Serious: Yes (Death, Other)
  Sender: CELLTRION
  Company Number: DE-ROCHE-3531518

PATIENT

DRUGS (4)
  1. BEVACIZUMAB [Suspect]
     Active Substance: BEVACIZUMAB
     Indication: Neoplasm malignant
     Dosage: 3 WEEK; ON 21/OCT/2023, MOST RECENT DOSE (1275MG) OF CANCER TREATMENT 2 PRIOR TO AE/SAE ONSET
     Route: 042
     Dates: start: 20230831
  2. ATEZOLIZUMAB [Suspect]
     Active Substance: ATEZOLIZUMAB
     Indication: Neoplasm malignant
     Dosage: 3 WEEK; ON 21/OCT/2023, MOST RECENT DOSE (1200MG) OF CANCER TREATMENT 1 PRIOR TO AE/SAE ONSET
     Route: 042
     Dates: start: 20230831
  3. PACLITAXEL [Suspect]
     Active Substance: PACLITAXEL
     Indication: Neoplasm malignant
     Dosage: 3 WEEK; ON 21/OCT/2023, MOST RECENT DOSE (420MG) OF CANCER TREATMENT 3 PRIOR TO AE/SAE ONSET
     Route: 042
     Dates: start: 20230831
  4. CARBOPLATIN [Suspect]
     Active Substance: CARBOPLATIN
     Indication: Neoplasm malignant
     Dosage: 3 WEEK; ON 21/OCT/2023, MOST RECENT DOSE (979MG) OF CANCER TREATMENT 4 PRIOR TO AE/SAE ONSET
     Route: 042
     Dates: start: 20230831

REACTIONS (2)
  - Neoplasm malignant [Fatal]
  - Thrombocytopenia [Recovered/Resolved]

NARRATIVE: CASE EVENT DATE: 20231114
